FAERS Safety Report 22137991 (Version 1)
Quarter: 2023Q1

REPORT INFORMATION
  Report Type: Spontaneous
  Country: US (occurrence: US)
  Receive Date: 20230325
  Receipt Date: 20230325
  Transmission Date: 20230417
  Serious: Yes (Other)
  Sender: FDA-Public Use
  Company Number: US-drreddys-SPO/USA/23/0162626

PATIENT
  Age: 15 Year
  Sex: Female

DRUGS (2)
  1. ZENATANE [Suspect]
     Active Substance: ISOTRETINOIN
     Indication: Acne
     Dosage: RMA ISSUE DATE : 16 JULY 2021 11:00:20 AM
  2. ZENATANE [Suspect]
     Active Substance: ISOTRETINOIN
     Dosage: RMA ISSUE DATE : 14 AUGUST 2021 01:48:00 PM, 08 SEPTEMBER 2021 09:15:47 AM, 08 OCTOBER 2021 11:38:22

REACTIONS (2)
  - Depression [Unknown]
  - Suicidal ideation [Unknown]
